FAERS Safety Report 15652173 (Version 2)
Quarter: 2019Q1

REPORT INFORMATION
  Report Type: Report from Study
  Country: None (occurrence: US)
  Receive Date: 20181123
  Receipt Date: 20190225
  Transmission Date: 20190417
  Serious: Yes (Other)
  Sender: FDA-Public Use
  Company Number: US-ABBVIE-18K-163-2566056-00

PATIENT
  Age: 53 Year
  Sex: Female

DRUGS (1)
  1. HUMIRA [Suspect]
     Active Substance: ADALIMUMAB
     Indication: ANKYLOSING SPONDYLITIS
     Route: 058

REACTIONS (5)
  - Urinary tract infection [Unknown]
  - Cataract [Unknown]
  - Pharyngitis [Unknown]
  - Cataract operation complication [Unknown]
  - Iritis [Recovered/Resolved]

NARRATIVE: CASE EVENT DATE: 2018
